FAERS Safety Report 8487837-7 (Version None)
Quarter: 2012Q3

REPORT INFORMATION
  Report Type: 
  Country: None (occurrence: None)
  Receive Date: 20120705
  Receipt Date: 20120627
  Transmission Date: 20120928
  Serious: Yes (Hospitalization)
  Sender: FDA-Public Use
  Company Number: FR-PFIZER INC-2012152935

PATIENT
  Age: 58 Year
  Sex: Male
  Weight: 76 kg

DRUGS (6)
  1. SUTENT [Suspect]
     Indication: RENAL CANCER METASTATIC
     Dosage: 50 MG, CYCLIC, DURING 4 WEEKS THEN 15 DAYS OFF
     Route: 048
     Dates: start: 20100104, end: 20100131
  2. PREDNISOLONE [Concomitant]
     Dosage: 20 MG/DAY
  3. PANTOPRAZOLE [Concomitant]
     Dosage: 1 TABLET/DAY
  4. BROMAZEPAM [Concomitant]
     Dosage: 0.5 TABLET, BEFORE SLEEPING
  5. CRESTOR [Concomitant]
     Dosage: 1 TABLET/DAY
  6. NEBIVOLOL HCL [Concomitant]
     Dosage: 1 TABLET/DAY

REACTIONS (1)
  - GENERAL PHYSICAL HEALTH DETERIORATION [None]
